FAERS Safety Report 8831078 (Version 3)
Quarter: 2020Q2

REPORT INFORMATION
  Report Type: Report from Study
  Country: NZ (occurrence: NZ)
  Receive Date: 20121009
  Receipt Date: 20200618
  Transmission Date: 20200714
  Serious: Yes (Death, Other)
  Sender: FDA-Public Use
  Company Number: PHHY2012NZ088648

PATIENT
  Age: 53 Year
  Sex: Male

DRUGS (1)
  1. LEPONEX [Suspect]
     Active Substance: CLOZAPINE
     Indication: SCHIZOPHRENIA
     Dosage: 350 MG, QHS
     Route: 048
     Dates: start: 20050628, end: 20120802

REACTIONS (11)
  - Depressed level of consciousness [Unknown]
  - Biliary sepsis [Fatal]
  - Urosepsis [Unknown]
  - Metastases to adrenals [Unknown]
  - Terminal state [Unknown]
  - Lymphocyte count increased [Unknown]
  - White blood cell count increased [Fatal]
  - Oesophageal pain [Unknown]
  - Oesophageal cancer metastatic [Fatal]
  - Neutrophil count increased [Fatal]
  - Glomerular filtration rate decreased [Unknown]

NARRATIVE: CASE EVENT DATE: 200805
